FAERS Safety Report 11433526 (Version 1)
Quarter: 2015Q3

REPORT INFORMATION
  Report Type: Spontaneous
  Country: US (occurrence: US)
  Receive Date: 20150831
  Receipt Date: 20150831
  Transmission Date: 20151125
  Serious: No
  Sender: FDA-Public Use
  Company Number: US-TEVA-517169USA

PATIENT

DRUGS (1)
  1. OXALIPLATIN INJECTION 50MG/10 ML+100MG/20ML [Suspect]
     Active Substance: OXALIPLATIN
     Dosage: 5 MG/ML 50 MG, 100 MG
     Route: 042

REACTIONS (3)
  - Infusion site swelling [Unknown]
  - Infusion site pain [Unknown]
  - Infusion site irritation [Unknown]
